FAERS Safety Report 8300086-8 (Version None)
Quarter: 2012Q2

REPORT INFORMATION
  Report Type: 
  Country: None (occurrence: None)
  Receive Date: 20120420
  Receipt Date: 20120413
  Transmission Date: 20120825
  Serious: No
  Sender: FDA-Public Use
  Company Number: US-PFIZER INC-2012038833

PATIENT
  Sex: Female
  Weight: 108 kg

DRUGS (20)
  1. LYRICA [Suspect]
     Indication: NECK PAIN
     Dosage: TAPERED HER DOSE
     Dates: start: 20120201, end: 20120201
  2. RHINOCORT [Concomitant]
     Dosage: UNK (SPRAY 2 SPRAYS IN NOSE TWICE DAILY)
     Route: 045
  3. NEXIUM [Concomitant]
     Dosage: 40 MG, 2X/DAY
     Route: 048
  4. CODEINE PHOSPHATE/GUAIFENESIN/PSEUDOEPHEDRINE HCL/TRIPROLIDINE HCL [Concomitant]
     Indication: COUGH
     Dosage: UNK (100-10 MG/5ML ORAL SOLUTION: TAKE 10 ML BY MOUTH EVERY FOUR HOURS AS NEEDED (COUGH))
     Route: 048
  5. VICODIN ES [Concomitant]
     Indication: PAIN
     Dosage: UNK (7.5-750 MG ORAL TAB: TAKE I TAB BY MOUTH EVERY 4-6 HOURS PRN (PAIN))
     Route: 048
  6. LIDODERM [Concomitant]
     Dosage: UNK (5 % APPLY EXTERNALLY PATCH: 1 PATCH BY TOPICAL ROUTE DAILY. 12 HOURS ON AND 12 HOURS OFF)
     Route: 061
  7. AMITIZA [Concomitant]
     Dosage: UNK (24 MCG ORAL CAP: TAKE 1 CAP BY MOUTH TWO TIMES DAILY WITH MEALS)
     Route: 048
  8. KENALOG [Concomitant]
     Dosage: 1 ML, 1X/DAY
     Route: 030
  9. ZITHROMAX [Concomitant]
     Dosage: 250 MG, UNK (TAKE 1 TAB BY MOUTH DAILY. TAKE 2 PILLS ON THE FIRST DAY AND 1 PILL EACH DAY FOR 4 DAYS
     Route: 048
  10. BACTROBAN [Concomitant]
     Dosage: UNK (2 % APPLY EXTERNALLY OINTMENT: THREE TIMES DAILY. APPLY TO AFFECTED AREA TID X 1 WEEK)
     Route: 061
  11. EFFEXOR XR [Concomitant]
     Dosage: 150 MG, UNK (TAKE 1 CAP BY MOUTH EVERY TWENTY- FOUR HOURS)
     Route: 048
  12. LYRICA [Suspect]
     Indication: BACK PAIN
     Dosage: 150 MG, 3X/DAY
     Dates: start: 20110426, end: 20120131
  13. SEROQUEL [Concomitant]
     Dosage: 300 MG, 1X/DAY (TAKE 1 TAB BY MOUTH EVERY BEDTIME)
     Route: 048
  14. BISACODYL [Concomitant]
     Dosage: TAKE 2 TABS BY MOUTH EVERY BEDTIME
     Route: 048
  15. LOTRIMIN [Concomitant]
     Dosage: UNK (APPLY TO AFFECTED AREA BID X 2 WEEKS)
     Route: 061
  16. DURAGESIC-100 [Concomitant]
     Dosage: 100 UG/HR; PLACE 1 PATCH ONTO SKIN EVERY 3 DAYS
  17. ZOVIRAX [Concomitant]
     Dosage: 200 MG, UNK (TAKE 1 CAP BY MOUTH FIVE TIMES DALLY. FOR TEN DAYS PER OUTBREAK)
     Route: 048
  18. VENTOLIN [Concomitant]
     Indication: COUGH
     Dosage: UNK (108 (90 BASE) MCG/ACT. TAKE 2 PUFFS BY INHALATION EVERY SIX HOURS AS NEEDED (COUGH))
     Route: 045
  19. SOMA [Concomitant]
     Dosage: 350 MG, UNK (TAKE 1 TAB BY MOUTH EVERY SIX HOURS AS)
     Route: 048
  20. KLONOPIN [Concomitant]
     Dosage: 0.5 MG, 3X/DAY
     Route: 048

REACTIONS (13)
  - PRODUCTIVE COUGH [None]
  - PYREXIA [None]
  - COUGH [None]
  - INFLUENZA LIKE ILLNESS [None]
  - UPPER RESPIRATORY TRACT INFECTION [None]
  - DIARRHOEA [None]
  - OROPHARYNGEAL PAIN [None]
  - NAUSEA [None]
  - CHEST DISCOMFORT [None]
  - MALAISE [None]
  - HYPERHIDROSIS [None]
  - UPPER-AIRWAY COUGH SYNDROME [None]
  - WITHDRAWAL SYNDROME [None]
